FAERS Safety Report 7597254-X (Version None)
Quarter: 2011Q3

REPORT INFORMATION
  Report Type: 
  Country: None (occurrence: None)
  Receive Date: 20110708
  Receipt Date: 20101229
  Transmission Date: 20111222
  Serious: No
  Sender: FDA-Public Use
  Company Number: US-GLAXOSMITHKLINE-A0902014A

PATIENT
  Age: 80 Year
  Sex: Female

DRUGS (6)
  1. ACTONEL [Concomitant]
  2. SINGULAIR [Concomitant]
  3. XALATAN [Concomitant]
  4. PROTONIX [Concomitant]
  5. FLOVENT [Suspect]
     Indication: ASTHMA
     Dosage: 1PUFF TWICE PER DAY
     Route: 055
     Dates: end: 20100101
  6. COMBIVENT [Concomitant]

REACTIONS (5)
  - LIP PAIN [None]
  - DRY MOUTH [None]
  - ORAL PAIN [None]
  - AGEUSIA [None]
  - ORAL DISCOMFORT [None]
